FAERS Safety Report 5089052-6 (Version None)
Quarter: 2006Q3

REPORT INFORMATION
  Report Type: 
  Country: None (occurrence: None)
  Receive Date: 20060825
  Receipt Date: 20060816
  Transmission Date: 20061208
  Serious: Yes (Other)
  Sender: FDA-Public Use
  Company Number: 2006UW16389

PATIENT
  Age: 56 Year
  Sex: Female

DRUGS (12)
  1. SEROQUEL [Suspect]
     Route: 048
  2. NEXIUM [Concomitant]
     Route: 048
  3. ZETIA [Concomitant]
  4. TOPAMAX [Concomitant]
  5. CLONIDINE [Concomitant]
  6. VERAPAMIL [Concomitant]
  7. SPIRONOLACTONE/HYDROCHLOROTHIAZIDE [Concomitant]
     Dosage: 75/25
  8. KLOR-CON [Concomitant]
  9. REGLAN [Concomitant]
     Dosage: ONE AFTER EACH MEAL AND QHS.
  10. PREMPRO [Concomitant]
     Dosage: 0.625/2.5 MG
  11. GLUCOPHAGE XR [Concomitant]
  12. KLONOPIN [Concomitant]

REACTIONS (3)
  - INCREASED APPETITE [None]
  - MYALGIA [None]
  - PAIN [None]
